FAERS Safety Report 6988873-X (Version None)
Quarter: 2010Q3

REPORT INFORMATION
  Report Type: 
  Country: None (occurrence: None)
  Receive Date: 20100916
  Receipt Date: 20100907
  Transmission Date: 20110219
  Serious: Yes (Death)
  Sender: FDA-Public Use
  Company Number: US-AMGEN-QUU436547

PATIENT
  Sex: Female

DRUGS (6)
  1. NPLATE [Suspect]
     Indication: IDIOPATHIC THROMBOCYTOPENIC PURPURA
     Dates: start: 20100316
  2. DANAZOL [Concomitant]
  3. RITUXIMAB [Concomitant]
     Dates: start: 20100224
  4. RITUXIMAB [Concomitant]
     Dates: start: 20100224
  5. RITUXIMAB [Concomitant]
     Dates: start: 20100224
  6. AZATHIOPRINE [Concomitant]

REACTIONS (1)
  - DEATH [None]
